FAERS Safety Report 8320851-0 (Version None)
Quarter: 2012Q2

REPORT INFORMATION
  Report Type: 
  Country: None (occurrence: None)
  Receive Date: 20120430
  Receipt Date: 20120421
  Transmission Date: 20120825
  Serious: Yes (Hospitalization, Other)
  Sender: FDA-Public Use
  Company Number: PHHY2012HU034411

PATIENT
  Sex: Female

DRUGS (1)
  1. TOBRAMYCIN [Suspect]
     Indication: PSEUDOMONAS INFECTION
     Dosage: 150 MG, BID
     Dates: start: 20100301

REACTIONS (7)
  - BURKHOLDERIA TEST POSITIVE [None]
  - WHITE BLOOD CELL COUNT INCREASED [None]
  - ASPHYXIA [None]
  - PSEUDOMONAS INFECTION [None]
  - NEUTROPHIL COUNT INCREASED [None]
  - SPUTUM DISCOLOURED [None]
  - C-REACTIVE PROTEIN INCREASED [None]
